FAERS Safety Report 9296974 (Version 2)
Quarter: 2013Q3

REPORT INFORMATION
  Report Type: Spontaneous
  Country: US (occurrence: US)
  Receive Date: 20130519
  Receipt Date: 20130723
  Transmission Date: 20140515
  Serious: Yes (Hospitalization)
  Sender: FDA-Public Use
  Company Number: US-BRISTOL-MYERS SQUIBB COMPANY-18876045

PATIENT
  Age: 44 Year
  Sex: Female
  Weight: 105.21 kg

DRUGS (5)
  1. ABILIFY TABS 2 MG [Suspect]
     Indication: DEPRESSION
     Dosage: 1DF:1-2 MG
     Route: 048
     Dates: start: 20130422, end: 20130430
  2. ABILIFY TABS 2 MG [Suspect]
     Indication: MOOD SWINGS
     Dosage: 1DF:1-2 MG
     Route: 048
     Dates: start: 20130422, end: 20130430
  3. ALPRAZOLAM [Concomitant]
     Dosage: 0.5 MG AS NEEDS 1 FOR EVERY 4 HRS
     Dates: start: 20130221
  4. BYSTOLIC [Concomitant]
     Dates: start: 20130221
  5. CITALOPRAM [Concomitant]
     Dates: start: 20130422

REACTIONS (3)
  - Mood swings [Unknown]
  - Headache [Unknown]
  - Depression [Unknown]
